FAERS Safety Report 18270333 (Version 3)
Quarter: 2020Q4

REPORT INFORMATION
  Report Type: Spontaneous
  Country: US (occurrence: US)
  Receive Date: 20200916
  Receipt Date: 20201029
  Transmission Date: 20210113
  Serious: No
  Sender: FDA-Public Use
  Company Number: US-TEVA-2020-US-1827561

PATIENT
  Age: 86 Year
  Sex: Male

DRUGS (2)
  1. LEVALBUTEROL TEVA [Suspect]
     Active Substance: LEVALBUTEROL
     Indication: DYSPNOEA
     Route: 065
     Dates: start: 20200828, end: 20200829
  2. LEVALBUTEROL TEVA [Suspect]
     Active Substance: LEVALBUTEROL
     Dosage: 1.25 MG / 0.5 ML/HE TOOK 4 VIALS
     Route: 065

REACTIONS (11)
  - Anxiety [Not Recovered/Not Resolved]
  - Drug ineffective [Unknown]
  - Tremor [Not Recovered/Not Resolved]
  - Oxygen saturation decreased [Not Recovered/Not Resolved]
  - Bronchospasm [Unknown]
  - Pulmonary pain [Unknown]
  - Nervousness [Not Recovered/Not Resolved]
  - Chest pain [Not Recovered/Not Resolved]
  - Dyspnoea [Not Recovered/Not Resolved]
  - Insomnia [Not Recovered/Not Resolved]
  - Agitation [Not Recovered/Not Resolved]

NARRATIVE: CASE EVENT DATE: 20200828
